FAERS Safety Report 9982127 (Version 1)
Quarter: 2014Q1

REPORT INFORMATION
  Report Type: Report from Study
  Country: US (occurrence: US)
  Receive Date: 20140307
  Receipt Date: 20140307
  Transmission Date: 20141002
  Serious: No
  Sender: FDA-Public Use
  Company Number: US-ABBVIE-13P-163-1179100-00

PATIENT
  Age: 24 Year
  Sex: Female

DRUGS (4)
  1. HUMIRA [Suspect]
     Indication: COLITIS ULCERATIVE
     Dates: start: 20131025, end: 20131025
  2. HUMIRA [Suspect]
     Dates: start: 20131108, end: 20131108
  3. HUMIRA [Suspect]
     Dates: start: 20131122
  4. LIALDA [Concomitant]
     Indication: COLITIS ULCERATIVE

REACTIONS (1)
  - Colitis ulcerative [Not Recovered/Not Resolved]
